FAERS Safety Report 6016830-9 (Version None)
Quarter: 2008Q4

REPORT INFORMATION
  Report Type: 
  Country: None (occurrence: None)
  Receive Date: 20081219
  Receipt Date: 20081209
  Transmission Date: 20090506
  Serious: Yes (Other)
  Sender: FDA-Public Use
  Company Number: 2008SP025030

PATIENT
  Sex: Female

DRUGS (1)
  1. CELESTAN DEPOT (BETAMETHASONE SODIUM PHOSPHATE/ACETATE) (BETAMETHASONE [Suspect]
     Indication: MATERNAL THERAPY TO ENHANCE FOETAL LUNG MATURITY
     Dosage: IV
     Route: 042
     Dates: start: 20081209, end: 20081209

REACTIONS (5)
  - DRUG EXPOSURE DURING PREGNANCY [None]
  - HYPOTENSION [None]
  - INCORRECT ROUTE OF DRUG ADMINISTRATION [None]
  - LACTIC ACIDOSIS [None]
  - TACHYCARDIA [None]
